FAERS Safety Report 7984340-5 (Version None)
Quarter: 2011Q4

REPORT INFORMATION
  Report Type: 
  Country: None (occurrence: None)
  Receive Date: 20111216
  Receipt Date: 20111208
  Transmission Date: 20120403
  Serious: No
  Sender: FDA-Public Use
  Company Number: US-JNJFOC-20111204795

PATIENT
  Sex: Male
  Weight: 88.45 kg

DRUGS (5)
  1. FENTANYL-100 [Suspect]
     Indication: PAIN
     Route: 062
     Dates: start: 20070101
  2. TRAZODONE HCL [Concomitant]
     Indication: SLEEP DISORDER
     Route: 048
     Dates: start: 19990101
  3. FLOMAX [Concomitant]
     Indication: BLADDER DISORDER
     Route: 048
     Dates: start: 20030101
  4. FENTANYL-100 [Suspect]
     Indication: PAIN
     Route: 062
     Dates: start: 20070101
  5. PERCOCET [Concomitant]
     Indication: BREAKTHROUGH PAIN
     Dosage: 10/325
     Route: 048

REACTIONS (1)
  - WRONG TECHNIQUE IN DRUG USAGE PROCESS [None]
